FAERS Safety Report 9421264 (Version 2)
Quarter: 2014Q1

REPORT INFORMATION
  Report Type: Spontaneous
  Country: US (occurrence: US)
  Receive Date: 20130725
  Receipt Date: 20140102
  Transmission Date: 20141002
  Serious: Yes (Death, Hospitalization, Other)
  Sender: FDA-Public Use
  Company Number: US-B.I. PHARMACEUTICALS,INC./RIDGEFIELD-2013-BI-21794BP

PATIENT
  Age: 80 Year
  Sex: Male
  Weight: 107.95 kg

DRUGS (13)
  1. PRADAXA [Suspect]
     Indication: ANTICOAGULANT THERAPY
     Dates: start: 20110318
  2. PRADAXA [Suspect]
     Indication: ATRIAL FIBRILLATION
     Dosage: 150 MG
     Route: 048
     Dates: start: 20120902, end: 20120903
  3. CLINDAMYCIN [Concomitant]
     Dosage: 900 MG
     Route: 048
  4. COLACE [Concomitant]
     Dosage: 200 MG
     Route: 048
  5. NORCO [Concomitant]
  6. INSULIN [Concomitant]
     Dosage: 40 U
     Route: 058
  7. CULTURELLE [Concomitant]
     Route: 048
  8. LIPITOR [Concomitant]
     Dosage: 20 MG
     Route: 048
  9. SYMBICORT [Concomitant]
     Dosage: 4 PUF
  10. CALCITRIOL [Concomitant]
     Dosage: 0.25 MCG
     Route: 048
  11. COREG [Concomitant]
     Dosage: 12.5 MCG
     Route: 048
  12. PRILOSEC [Concomitant]
     Dosage: 40 MCG
     Route: 048
  13. SPIRIVA [Concomitant]
     Dosage: 18 MCG

REACTIONS (11)
  - Shock haemorrhagic [Fatal]
  - Haemorrhagic anaemia [Fatal]
  - Disseminated intravascular coagulation [Fatal]
  - Coagulopathy [Fatal]
  - Haemorrhage intracranial [Unknown]
  - Fall [Unknown]
  - Failure to thrive [Unknown]
  - Haematuria [Recovered/Resolved]
  - Thrombocytopenia [Unknown]
  - Epistaxis [Recovered/Resolved]
  - Ecchymosis [Unknown]
